FAERS Safety Report 5481996-6 (Version None)
Quarter: 2007Q4

REPORT INFORMATION
  Report Type: 
  Country: None (occurrence: None)
  Receive Date: 20071005
  Receipt Date: 20070920
  Transmission Date: 20080405
  Serious: Yes (Hospitalization)
  Sender: FDA-Public Use
  Company Number: 2007000723

PATIENT
  Age: 63 Year
  Sex: Male

DRUGS (16)
  1. ERLOTINIB (TABLET) [Suspect]
     Indication: PANCREATIC CARCINOMA METASTATIC
     Dosage: 100 MG (QD), ORAL
     Route: 048
  2. BEVACIZUMAB (INJECTION FOR INFUSION) [Suspect]
     Dosage: 10 MG/KG (Q2W), INTRAVENOUS DRIP
     Route: 041
  3. GEMCITABINE [Suspect]
     Dosage: 1000 MG/M^2, INTRAVENOUS
     Route: 042
     Dates: start: 20061127
  4. COLACE (DOCUSATE SODIUM) [Concomitant]
  5. ZOFRAN [Concomitant]
  6. COMPAZINE [Concomitant]
  7. ATENOLOL [Concomitant]
  8. INSULIN NPH HUMAN (INSULIN INJECTION, ISOPHANE) [Concomitant]
  9. PROPAFENONE HCL [Concomitant]
  10. IBUPROFEN [Concomitant]
  11. CLINDAMYCIN (CLINDAMYCIN) [Concomitant]
  12. CREON 20 (PANCREATIN) [Concomitant]
  13. HYDROCHLOROTHIAZIDE [Concomitant]
  14. DIOVAN [Concomitant]
  15. LORAZEPAM [Concomitant]
  16. VANCOMYCIN [Concomitant]

REACTIONS (11)
  - BILE DUCT OBSTRUCTION [None]
  - BILE DUCT STENOSIS [None]
  - BLOOD GLUCOSE DECREASED [None]
  - CHOLANGITIS [None]
  - CONFUSIONAL STATE [None]
  - DISEASE PROGRESSION [None]
  - DRUG TOXICITY [None]
  - PNEUMONIA ASPIRATION [None]
  - RESPIRATORY DISTRESS [None]
  - RESPIRATORY FAILURE [None]
  - SEPSIS [None]
